FAERS Safety Report 18975034 (Version 1)
Quarter: 2021Q1

REPORT INFORMATION
  Report Type: Spontaneous
  Country: US (occurrence: US)
  Receive Date: 20210306
  Receipt Date: 20210306
  Transmission Date: 20210420
  Serious: No
  Sender: FDA-Public Use
  Company Number: NVSC2021US046329

PATIENT
  Sex: Female

DRUGS (2)
  1. MEKINIST [Suspect]
     Active Substance: TRAMETINIB DIMETHYL SULFOXIDE
     Indication: BENIGN LYMPH NODE NEOPLASM
     Dosage: 2 MG, QD
     Route: 048
     Dates: start: 202009
  2. TAFINLAR [Suspect]
     Active Substance: DABRAFENIB MESYLATE
     Indication: BENIGN LYMPH NODE NEOPLASM
     Dosage: 150 MG, BID
     Route: 065
     Dates: start: 202009

REACTIONS (3)
  - Joint swelling [Unknown]
  - Pyrexia [Unknown]
  - Arthritis [Unknown]
